FAERS Safety Report 7935420-1 (Version None)
Quarter: 2011Q4

REPORT INFORMATION
  Report Type: 
  Country: None (occurrence: None)
  Receive Date: 20111122
  Receipt Date: 20111111
  Transmission Date: 20120403
  Serious: No
  Sender: FDA-Public Use
  Company Number: US-B.I. PHARMACEUTICALS,INC./RIDGEFIELD-2011-BP-26061BP

PATIENT
  Sex: Female

DRUGS (16)
  1. ASCORBIC ACID [Concomitant]
     Indication: VITAMIN SUPPLEMENTATION
     Route: 048
  2. DIGOXIN [Concomitant]
     Indication: ATRIAL FIBRILLATION
     Route: 048
  3. LEVOTHYROXINE SODIUM [Concomitant]
     Indication: HYPOTHYROIDISM
     Route: 048
  4. OXAZEPAM [Concomitant]
     Indication: INSOMNIA
     Route: 048
  5. ACETAMINOPHEN [Concomitant]
     Indication: FIBROMYALGIA
     Route: 048
  6. ZETIA [Concomitant]
     Indication: BLOOD CHOLESTEROL INCREASED
     Route: 048
  7. VITAMIN D [Concomitant]
     Indication: VITAMIN SUPPLEMENTATION
     Route: 048
  8. CALCIUM [Concomitant]
     Indication: MINERAL SUPPLEMENTATION
     Route: 048
  9. MULTAQ [Concomitant]
     Indication: ATRIAL FIBRILLATION
     Route: 048
  10. CARDIZEM [Concomitant]
     Indication: HYPERTENSION
     Route: 048
  11. PRADAXA [Suspect]
     Indication: ATRIAL FIBRILLATION
     Dosage: 300 MG
     Route: 048
     Dates: start: 20110401
  12. MULTI-VITAMIN [Concomitant]
     Indication: VITAMIN SUPPLEMENTATION
     Route: 048
  13. KLONOPIN [Concomitant]
     Indication: FIBROMYALGIA
     Route: 048
  14. TRAMADOL HCL [Concomitant]
     Indication: FIBROMYALGIA
     Route: 048
  15. RED YEAST RICE [Concomitant]
     Indication: BLOOD CHOLESTEROL INCREASED
     Route: 048
  16. SANCTURA [Concomitant]
     Indication: HYPERTONIC BLADDER
     Route: 048

REACTIONS (2)
  - DYSPEPSIA [None]
  - ARTHRALGIA [None]
